FAERS Safety Report 9421895 (Version 1)
Quarter: 2013Q3

REPORT INFORMATION
  Report Type: Spontaneous
  Country: US (occurrence: None)
  Receive Date: 20130724
  Receipt Date: 20130724
  Transmission Date: 20140515
  Serious: Yes (Life-Threatening)
  Sender: FDA-Public Use
  Company Number: None

PATIENT
  Age: 75 Year
  Sex: Male
  Weight: 92.08 kg

DRUGS (1)
  1. MIRALAX [Suspect]
     Indication: LAXATIVE SUPPORTIVE CARE
     Dosage: JUNE 13; 1. OZ. 1

REACTIONS (2)
  - Hypersensitivity [None]
  - Paraesthesia [None]
